FAERS Safety Report 12647792 (Version 1)
Quarter: 2016Q3

REPORT INFORMATION
  Report Type: Spontaneous
  Country: US (occurrence: None)
  Receive Date: 20160811
  Receipt Date: 20160811
  Transmission Date: 20161109
  Serious: Yes (Other)
  Sender: FDA-Public Use
  Company Number: None

PATIENT
  Sex: Female
  Weight: 83.01 kg

DRUGS (1)
  1. STELARA [Suspect]
     Active Substance: USTEKINUMAB
     Indication: PSORIASIS
     Dosage: STELARA 45MG Q12WEEKS SUBCUTANEOUSLY
     Route: 058
     Dates: start: 201601

REACTIONS (3)
  - Pain in extremity [None]
  - Productive cough [None]
  - Arthralgia [None]
